FAERS Safety Report 15838208 (Version 3)
Quarter: 2021Q4

REPORT INFORMATION
  Report Type: Spontaneous
  Country: FR (occurrence: FR)
  Receive Date: 20190117
  Receipt Date: 20211230
  Transmission Date: 20220303
  Serious: Yes (Life-Threatening, Hospitalization, Other)
  Sender: FDA-Public Use
  Company Number: PHHY2018FR166268

PATIENT
  Age: 69 Year
  Sex: Male

DRUGS (4)
  1. FLUDARABINE PHOSPHATE [Suspect]
     Active Substance: FLUDARABINE PHOSPHATE
     Indication: Acute myeloid leukaemia
     Dosage: UNK
     Route: 065
  2. CYTARABINE [Suspect]
     Active Substance: CYTARABINE
     Indication: Acute myeloid leukaemia
     Dosage: UNK
     Route: 065
  3. IDARUBICIN [Suspect]
     Active Substance: IDARUBICIN
     Indication: Acute myeloid leukaemia
     Dosage: UNK
     Route: 065
  4. GRANULOCYTE COLONY-STIMULATING FACTOR NOS [Concomitant]
     Active Substance: GRANULOCYTE COLONY-STIMULATING FACTOR NOS
     Indication: Acute myeloid leukaemia
     Dosage: UNK
     Route: 065

REACTIONS (8)
  - Fungal infection [Recovered/Resolved]
  - Pneumonia fungal [Recovered/Resolved]
  - Neutropenia [Recovered/Resolved]
  - Pyrexia [Recovered/Resolved]
  - Pulmonary mass [Recovered/Resolved]
  - Respiratory tract infection fungal [Recovered/Resolved]
  - Off label use [Unknown]
  - Therapeutic product effective for unapproved indication [Unknown]

NARRATIVE: CASE EVENT DATE: 20150101
